FAERS Safety Report 4486650-5 (Version None)
Quarter: 2004Q4

REPORT INFORMATION
  Report Type: 
  Country: None (occurrence: None)
  Receive Date: 20041027
  Receipt Date: 20041018
  Transmission Date: 20050328
  Serious: Yes (Death)
  Sender: FDA-Public Use
  Company Number: 200420481GDDC

PATIENT
  Age: 74 Year
  Sex: Male

DRUGS (6)
  1. AMARYL [Suspect]
     Indication: DIABETES MELLITUS NON-INSULIN-DEPENDENT
     Route: 048
     Dates: start: 20040616, end: 20041004
  2. ASPIRIN [Concomitant]
     Route: 048
     Dates: start: 20040601, end: 20041004
  3. MONOPRIL [Concomitant]
     Route: 048
     Dates: start: 20040601, end: 20041004
  4. DIGOXIN [Concomitant]
     Route: 048
     Dates: start: 20040601, end: 20041004
  5. CONCOR [Concomitant]
     Route: 048
     Dates: start: 20040601, end: 20041004
  6. VEROSPIRON [Concomitant]
     Route: 048
     Dates: start: 20040601, end: 20041004

REACTIONS (4)
  - BLOOD GLUCOSE INCREASED [None]
  - HYPOGLYCAEMIC COMA [None]
  - MYOCARDIAL ISCHAEMIA [None]
  - PNEUMONIA [None]
